FAERS Safety Report 25873709 (Version 1)
Quarter: 2025Q4

REPORT INFORMATION
  Report Type: Spontaneous
  Country: US (occurrence: US)
  Receive Date: 20251002
  Receipt Date: 20251002
  Transmission Date: 20260118
  Serious: No
  Sender: INTRA-CELLULAR THERAPIES
  Company Number: US-INTRA-CELLULAR THERAPIES, INC.-2025ICT01554

PATIENT
  Age: 63 Year
  Sex: Female

DRUGS (5)
  1. CAPLYTA [Suspect]
     Active Substance: LUMATEPERONE
     Indication: Asthenia
     Dosage: UNK
     Dates: start: 2025, end: 2025
  2. CAPLYTA [Suspect]
     Active Substance: LUMATEPERONE
     Indication: Apathy
  3. CAPLYTA [Suspect]
     Active Substance: LUMATEPERONE
     Indication: Depression
  4. RISPERIDONE [Concomitant]
     Active Substance: RISPERIDONE
     Dosage: TAPERING OFF
  5. PLAVIX [Concomitant]
     Active Substance: CLOPIDOGREL BISULFATE

REACTIONS (6)
  - Hypersomnia [Unknown]
  - Back pain [Unknown]
  - Hypotension [Unknown]
  - Fatigue [Unknown]
  - Decreased appetite [Unknown]
  - Off label use [Recovered/Resolved]

NARRATIVE: CASE EVENT DATE: 20250101
